FAERS Safety Report 6195423-7 (Version None)
Quarter: 2009Q2

REPORT INFORMATION
  Report Type: 
  Country: None (occurrence: None)
  Receive Date: 20090519
  Receipt Date: 20090427
  Transmission Date: 20091009
  Serious: Yes (Hospitalization)
  Sender: FDA-Public Use
  Company Number: MY-JNJFOC-20090406763

PATIENT
  Sex: Female
  Weight: 56 kg

DRUGS (52)
  1. GOLIMUMAB [Suspect]
     Route: 058
  2. GOLIMUMAB [Suspect]
     Route: 058
  3. GOLIMUMAB [Suspect]
     Route: 058
  4. GOLIMUMAB [Suspect]
     Route: 058
  5. GOLIMUMAB [Suspect]
     Route: 058
  6. GOLIMUMAB [Suspect]
     Route: 058
  7. GOLIMUMAB [Suspect]
     Route: 058
  8. GOLIMUMAB [Suspect]
     Route: 058
  9. GOLIMUMAB [Suspect]
     Route: 058
  10. GOLIMUMAB [Suspect]
     Route: 058
  11. GOLIMUMAB [Suspect]
     Route: 058
  12. GOLIMUMAB [Suspect]
     Route: 058
  13. GOLIMUMAB [Suspect]
     Route: 058
  14. GOLIMUMAB [Suspect]
     Route: 058
  15. GOLIMUMAB [Suspect]
     Route: 058
  16. GOLIMUMAB [Suspect]
     Route: 058
  17. GOLIMUMAB [Suspect]
     Route: 058
  18. GOLIMUMAB [Suspect]
     Route: 058
  19. GOLIMUMAB [Suspect]
     Route: 058
  20. GOLIMUMAB [Suspect]
     Route: 058
  21. GOLIMUMAB [Suspect]
     Route: 058
  22. GOLIMUMAB [Suspect]
     Route: 058
  23. GOLIMUMAB [Suspect]
     Route: 058
  24. GOLIMUMAB [Suspect]
     Route: 058
  25. GOLIMUMAB [Suspect]
     Route: 058
  26. GOLIMUMAB [Suspect]
     Route: 058
  27. GOLIMUMAB [Suspect]
     Route: 058
  28. GOLIMUMAB [Suspect]
     Route: 058
  29. GOLIMUMAB [Suspect]
     Route: 058
  30. GOLIMUMAB [Suspect]
     Route: 058
  31. GOLIMUMAB [Suspect]
     Route: 058
  32. GOLIMUMAB [Suspect]
     Route: 058
  33. GOLIMUMAB [Suspect]
     Route: 058
  34. GOLIMUMAB [Suspect]
     Indication: RHEUMATOID ARTHRITIS
     Route: 058
  35. PLACEBO [Suspect]
     Route: 048
  36. PLACEBO [Suspect]
     Route: 048
  37. PLACEBO [Suspect]
     Route: 048
  38. PLACEBO [Suspect]
     Route: 048
  39. PLACEBO [Suspect]
     Dosage: WEEK 32 - WEEK 60
     Route: 048
  40. PLACEBO [Suspect]
     Dosage: WEEK 32 - WEEK 60
     Route: 048
  41. PLACEBO [Suspect]
     Route: 048
  42. PLACEBO [Suspect]
     Route: 048
  43. PLACEBO [Suspect]
     Route: 048
  44. PLACEBO [Suspect]
     Route: 048
  45. PLACEBO [Suspect]
     Indication: RHEUMATOID ARTHRITIS
     Route: 048
  46. LEVOTHYROXINE SODIUM [Concomitant]
     Route: 048
  47. FOLIC ACID [Concomitant]
     Route: 048
  48. ASCORBIC ACID [Concomitant]
     Route: 048
  49. NATURAL TEARS [Concomitant]
     Route: 061
  50. ETORICOXIB [Concomitant]
     Route: 048
  51. DAKTARIN [Concomitant]
     Route: 061
  52. OMEPRAZOLE [Concomitant]
     Route: 048

REACTIONS (1)
  - ABSCESS LIMB [None]
